FAERS Safety Report 5597958-4 (Version None)
Quarter: 2008Q1

REPORT INFORMATION
  Report Type: 
  Country: None (occurrence: None)
  Receive Date: 20080116
  Receipt Date: 20080110
  Transmission Date: 20080703
  Serious: Yes (Hospitalization)
  Sender: FDA-Public Use
  Company Number: 2007SP020920

PATIENT
  Age: 55 Year
  Sex: Male

DRUGS (3)
  1. TEMODAL [Suspect]
     Indication: OLIGODENDROGLIOMA
     Dosage: ;PO; PO
     Route: 048
     Dates: start: 20071003, end: 20071007
  2. TEMODAL [Suspect]
     Indication: OLIGODENDROGLIOMA
     Dosage: ;PO; PO
     Route: 048
     Dates: start: 20071201
  3. ZOPHREN [Concomitant]

REACTIONS (2)
  - MYOSITIS [None]
  - SYSTEMIC INFLAMMATORY RESPONSE SYNDROME [None]
